FAERS Safety Report 4814990-6 (Version None)
Quarter: 2005Q4

REPORT INFORMATION
  Report Type: 
  Country: None (occurrence: None)
  Receive Date: 20051026
  Receipt Date: 20051007
  Transmission Date: 20060501
  Serious: Yes (Death, Hospitalization)
  Sender: FDA-Public Use
  Company Number: GBS040214376

PATIENT
  Age: 75 Year
  Sex: Male

DRUGS (2)
  1. PROZAC [Suspect]
     Indication: DEPRESSION
     Dates: start: 20020101
  2. PROZAC [Suspect]
     Indication: PROPHYLAXIS
     Dates: start: 20020101

REACTIONS (2)
  - DRUG PRESCRIBING ERROR [None]
  - TOXIC EPIDERMAL NECROLYSIS [None]
